FAERS Safety Report 9614487 (Version 1)
Quarter: 2013Q4

REPORT INFORMATION
  Report Type: Spontaneous
  Country: FR (occurrence: FR)
  Receive Date: 20131011
  Receipt Date: 20131011
  Transmission Date: 20140711
  Serious: Yes (Hospitalization, Other)
  Sender: FDA-Public Use
  Company Number: FR-PFIZER INC-2013291055

PATIENT
  Age: 85 Year
  Sex: Female

DRUGS (9)
  1. CORDARONE [Suspect]
     Indication: ATRIAL FIBRILLATION
     Dosage: 200 MG, DAILY
     Route: 048
     Dates: start: 20130523
  2. COUMADINE [Suspect]
     Indication: ATRIAL FIBRILLATION
     Dosage: UNK
     Route: 048
     Dates: start: 20130523, end: 20130530
  3. FOSAVANCE [Suspect]
     Indication: OSTEOPOROSIS
     Dosage: UNK
     Route: 048
  4. AUGMENTIN [Suspect]
     Indication: PNEUMONIA
     Dosage: 1 G, 3X/DAY
     Route: 048
     Dates: start: 20130523, end: 20130601
  5. SPIRIVA [Concomitant]
     Dosage: UNK
  6. SERETIDE [Concomitant]
     Dosage: UNK
  7. UVEDOSE [Concomitant]
     Dosage: UNK
  8. MELAXOSE [Concomitant]
     Dosage: UNK
  9. LASILIX [Concomitant]
     Dosage: UNK

REACTIONS (12)
  - Melaena [Recovered/Resolved]
  - Rectal haemorrhage [Recovered/Resolved]
  - Duodenal ulcer [Recovered/Resolved]
  - Anaemia [Recovered/Resolved]
  - International normalised ratio increased [Unknown]
  - Hypotension [Unknown]
  - Liver injury [Unknown]
  - Cholestasis [Unknown]
  - Cardiac failure [Unknown]
  - Renal failure acute [Unknown]
  - Gastritis atrophic [Unknown]
  - Duodenitis [Unknown]
